FAERS Safety Report 9142635 (Version 4)
Quarter: 2013Q3

REPORT INFORMATION
  Report Type: Spontaneous
  Country: BR (occurrence: BR)
  Receive Date: 20130306
  Receipt Date: 20130904
  Transmission Date: 20140515
  Serious: Yes (Hospitalization, Other)
  Sender: FDA-Public Use
  Company Number: PHHY2013BR020697

PATIENT
  Sex: Male
  Weight: 84 kg

DRUGS (6)
  1. CODATEN [Suspect]
     Indication: PAIN
     Dosage: 50 MG, Q12H (EVERY 12 HOURS)
     Route: 048
     Dates: start: 200903
  2. CODATEN [Suspect]
     Dosage: 50 MG, Q8H (1 TABLET EVERY 8 HOURS)
     Route: 048
     Dates: start: 201010
  3. CODATEN [Suspect]
     Dosage: 50 MG, UKN (AFTER THIRD SURGERY)
     Route: 048
  4. CODATEN [Suspect]
     Dosage: 50 MG, UKN (AFTER LAST SURGERY)
     Route: 048
  5. TYLEX [Suspect]
     Indication: PAIN
     Dosage: 100 MG, QD (DAILY)
     Route: 048
  6. VIAGRA [Suspect]
     Indication: SEXUAL DYSFUNCTION

REACTIONS (6)
  - Device related infection [Recovered/Resolved]
  - Pyrexia [Recovered/Resolved]
  - Pain in extremity [Not Recovered/Not Resolved]
  - Sexual dysfunction [Not Recovered/Not Resolved]
  - Pain [Unknown]
  - Drug ineffective [Unknown]
